FAERS Safety Report 16081089 (Version 1)
Quarter: 2019Q1

REPORT INFORMATION
  Report Type: Spontaneous
  Country: US (occurrence: US)
  Receive Date: 20190316
  Receipt Date: 20190316
  Transmission Date: 20190418
  Serious: No
  Sender: FDA-Public Use
  Company Number: US-ELI_LILLY_AND_COMPANY-US201903007289

PATIENT
  Sex: Female

DRUGS (1)
  1. TRULICITY [Suspect]
     Active Substance: DULAGLUTIDE
     Indication: PRODUCT USED FOR UNKNOWN INDICATION
     Dosage: 0.75 MG, UNKNOWN
     Route: 065

REACTIONS (6)
  - Injection site swelling [Recovered/Resolved]
  - Product administered at inappropriate site [Unknown]
  - Injection site hypoaesthesia [Recovered/Resolved]
  - Injection site pain [Unknown]
  - Injection site paraesthesia [Unknown]
  - Injection site haematoma [Unknown]
